FAERS Safety Report 14370688 (Version 1)
Quarter: 2018Q1

REPORT INFORMATION
  Report Type: Spontaneous
  Country: US (occurrence: US)
  Receive Date: 20180110
  Receipt Date: 20180110
  Transmission Date: 20180509
  Serious: No
  Sender: FDA-Public Use
  Company Number: US-PFIZER INC-2018006457

PATIENT
  Age: 82 Year
  Sex: Male
  Weight: 75 kg

DRUGS (1)
  1. GABAPENTIN. [Suspect]
     Active Substance: GABAPENTIN
     Indication: HERPES ZOSTER
     Dosage: 300 MG, 3X/DAY (EVERY 8 HOURS)
     Route: 048
     Dates: start: 20180102

REACTIONS (7)
  - Anxiety [Unknown]
  - Panic attack [Unknown]
  - Agitation [Unknown]
  - Hallucination [Unknown]
  - Logorrhoea [Unknown]
  - Product use in unapproved indication [Unknown]
  - Psychomotor hyperactivity [Unknown]
